FAERS Safety Report 25761932 (Version 1)
Quarter: 2025Q3

REPORT INFORMATION
  Report Type: Spontaneous
  Country: EU (occurrence: EU)
  Receive Date: 20250904
  Receipt Date: 20250904
  Transmission Date: 20251021
  Serious: Yes (Death, Other)
  Sender: BRISTOL-MYERS SQUIBB COMPANY
  Company Number: EU-BRISTOL-MYERS SQUIBB COMPANY-2025-122310

PATIENT
  Age: 81 Year
  Sex: Male
  Weight: 76 kg

DRUGS (8)
  1. YERVOY [Suspect]
     Active Substance: IPILIMUMAB
     Indication: Acral lentiginous melanoma
     Route: 042
     Dates: start: 20250122, end: 20250122
  2. OPDIVO [Suspect]
     Active Substance: NIVOLUMAB
     Indication: Acral lentiginous melanoma
     Route: 042
     Dates: start: 20250122, end: 20250122
  3. ENCORAFENIB [Suspect]
     Active Substance: ENCORAFENIB
     Indication: Acral lentiginous melanoma
     Route: 048
     Dates: start: 20241031, end: 20250131
  4. BINIMETINIB [Suspect]
     Active Substance: BINIMETINIB
     Indication: Acral lentiginous melanoma
     Route: 048
     Dates: start: 20241031, end: 20250131
  5. METFORMIN [Concomitant]
     Active Substance: METFORMIN HYDROCHLORIDE
     Indication: Product used for unknown indication
     Route: 048
  6. FENOFIBRATE [Concomitant]
     Active Substance: FENOFIBRATE
     Indication: Product used for unknown indication
     Route: 048
  7. ROSUVASTATIN [Concomitant]
     Active Substance: ROSUVASTATIN
     Indication: Product used for unknown indication
     Route: 048
  8. VALPROATE SODIUM [Concomitant]
     Active Substance: VALPROATE SODIUM
     Indication: Product used for unknown indication
     Route: 048

REACTIONS (1)
  - Death [Fatal]
